FAERS Safety Report 8376383-7 (Version None)
Quarter: 2012Q2

REPORT INFORMATION
  Report Type: 
  Country: None (occurrence: None)
  Receive Date: 20120522
  Receipt Date: 20120515
  Transmission Date: 20120825
  Serious: Yes (Hospitalization)
  Sender: FDA-Public Use
  Company Number: GXKR2012DE001733

PATIENT
  Age: 15 Year
  Sex: Female
  Weight: 62.4 kg

DRUGS (6)
  1. PREDNISOLONE [Concomitant]
     Dosage: 10 MG, QD
  2. ILARIS [Suspect]
     Dosage: 4 MG/KG, QMO
     Route: 065
     Dates: start: 20100802
  3. METHOTREXATE [Suspect]
     Dosage: 15 MG, QW
     Route: 065
  4. OMEPRAZOLE [Concomitant]
     Dosage: 40 MG, QD
     Dates: start: 20120321, end: 20120412
  5. PANTOPRAZOLE [Concomitant]
     Dosage: 40 MG, QD
     Route: 048
     Dates: start: 20120412
  6. IBUPROFEN [Suspect]
     Dosage: 600 MG, PRN
     Dates: end: 20120412

REACTIONS (4)
  - BLOOD COUNT ABNORMAL [None]
  - RASH [None]
  - PAIN [None]
  - DRUG RASH WITH EOSINOPHILIA AND SYSTEMIC SYMPTOMS [None]
